FAERS Safety Report 8894554 (Version 1)
Quarter: 2012Q4

REPORT INFORMATION
  Report Type: 
  Country: US (occurrence: US)
  Receive Date: 20121108
  Receipt Date: 20121108
  Transmission Date: 20130627
  Serious: No
  Sender: FDA-Public Use
  Company Number: US-009507513-1210USA011214

PATIENT
  Age: 62 Year
  Sex: Female

DRUGS (1)
  1. FOSAMAX [Suspect]
     Indication: BONE LOSS
     Dosage: UNK
     Route: 048
     Dates: start: 200010

REACTIONS (2)
  - Oesophageal pain [Unknown]
  - Bone pain [Unknown]
